FAERS Safety Report 19725075 (Version 10)
Quarter: 2021Q4

REPORT INFORMATION
  Report Type: Report from Study
  Country: CN (occurrence: None)
  Receive Date: 20210819
  Receipt Date: 20211215
  Transmission Date: 20220303
  Serious: Yes (Hospitalization)
  Sender: FDA-Public Use
  Company Number: CN-EISAI MEDICAL RESEARCH-EC-2021-098058

PATIENT
  Age: 68 Year
  Sex: Male
  Weight: 55 kg

DRUGS (16)
  1. LENVATINIB [Suspect]
     Active Substance: LENVATINIB
     Indication: Non-small cell lung cancer metastatic
     Route: 048
     Dates: start: 20201218, end: 20211124
  2. PEMBROLIZUMAB [Suspect]
     Active Substance: PEMBROLIZUMAB
     Indication: Non-small cell lung cancer metastatic
     Route: 041
     Dates: start: 20201218, end: 20210609
  3. PEMBROLIZUMAB [Suspect]
     Active Substance: PEMBROLIZUMAB
     Route: 041
     Dates: start: 20210630, end: 20210630
  4. PEMBROLIZUMAB [Suspect]
     Active Substance: PEMBROLIZUMAB
     Route: 041
     Dates: start: 20210721
  5. PEMETREXED [Suspect]
     Active Substance: PEMETREXED
     Indication: Non-small cell lung cancer metastatic
     Route: 041
     Dates: start: 20201218, end: 20210609
  6. PEMETREXED [Suspect]
     Active Substance: PEMETREXED
     Route: 041
     Dates: start: 20210630, end: 20210630
  7. PEMETREXED [Suspect]
     Active Substance: PEMETREXED
     Route: 041
     Dates: start: 20210721
  8. CARBOPLATIN [Concomitant]
     Active Substance: CARBOPLATIN
     Dates: start: 20201218, end: 20210219
  9. SUCRALFATE [Concomitant]
     Active Substance: SUCRALFATE
     Dates: start: 197001
  10. RANITIDINE BISMUTH CITRATE [Concomitant]
     Active Substance: RANITIDINE BISMUTH CITRATE
     Dates: start: 197001
  11. CENTRUM CONTROL [Concomitant]
     Dates: start: 20210406
  12. MUCOPOLYSACCHARIDE POLYSULFATE [Concomitant]
     Dates: start: 20210422
  13. MOXIFLOXACIN [Concomitant]
     Active Substance: MOXIFLOXACIN
     Dates: start: 20210629, end: 20210713
  14. IBUPROFEN [Concomitant]
     Active Substance: IBUPROFEN
     Dates: start: 20210711, end: 20210719
  15. CEPHALEXIN [Concomitant]
     Active Substance: CEPHALEXIN
     Dates: start: 20190711, end: 20210719
  16. CENTRUM CONTROL [Concomitant]
     Dates: start: 20210406

REACTIONS (1)
  - Alanine aminotransferase increased [Recovered/Resolved]

NARRATIVE: CASE EVENT DATE: 20210720
